FAERS Safety Report 5595649-7 (Version None)
Quarter: 2007Q4

REPORT INFORMATION
  Report Type: 
  Country: None (occurrence: None)
  Receive Date: 20071218
  Receipt Date: 20070815
  Transmission Date: 20080405
  Serious: Yes (Hospitalization, Other)
  Sender: FDA-Public Use
  Company Number: 2007067585

PATIENT
  Age: 69 Year
  Sex: Female

DRUGS (1)
  1. BEXTRA [Suspect]
     Indication: ARTHRITIS
     Dosage: 20 MG (20 MG, 1 IN 1 D)
     Dates: start: 19990101

REACTIONS (1)
  - PULMONARY EMBOLISM [None]
